FAERS Safety Report 13993274 (Version 4)
Quarter: 2018Q2

REPORT INFORMATION
  Report Type: Spontaneous
  Country: BR (occurrence: BR)
  Receive Date: 20170920
  Receipt Date: 20180529
  Transmission Date: 20180711
  Serious: Yes (Hospitalization, Other)
  Sender: FDA-Public Use
  Company Number: BR-ABBVIE-17P-020-2105816-00

PATIENT
  Sex: Male
  Weight: 63.3 kg

DRUGS (8)
  1. DIAZEPAM. [Suspect]
     Active Substance: DIAZEPAM
     Indication: EPILEPSY
     Dosage: 8 A.M./ 4 P.M./ MIDNIGHT
     Route: 048
     Dates: start: 201706
  2. GARDENAL [Suspect]
     Active Substance: PHENOBARBITAL
     Indication: EPILEPSY
     Dosage: ^1^ IN THE MORNING/ ^1^ AT NIGHT (WITH DEPAKOTE)
     Route: 048
  3. DEPAKENE [Suspect]
     Active Substance: VALPROIC ACID
     Indication: EPILEPSY
     Dosage: 8 A.M./ NOON/ MIDNIGHT
     Route: 048
     Dates: start: 2016
  4. GARDENAL [Suspect]
     Active Substance: PHENOBARBITAL
     Indication: PETIT MAL EPILEPSY
  5. DEPAKENE [Suspect]
     Active Substance: VALPROIC ACID
     Indication: PETIT MAL EPILEPSY
     Dosage: 8A.M./NOON/MIDNIGHT?START DATE:FROM 1 TO 2 YEARS AGO (PATIENT DOES NOT REMEMBER ABOUT IT)
     Route: 065
  6. BITTER SALT [Concomitant]
     Indication: SUPPORTIVE CARE
     Dates: start: 20180425
  7. DIAZEPAM. [Suspect]
     Active Substance: DIAZEPAM
     Indication: SLEEP DISORDER
     Route: 065
  8. DIAZEPAM. [Suspect]
     Active Substance: DIAZEPAM
     Indication: PETIT MAL EPILEPSY

REACTIONS (23)
  - Suicidal ideation [Recovering/Resolving]
  - Epilepsy [Not Recovered/Not Resolved]
  - Disorganised speech [Unknown]
  - Asthenia [Recovered/Resolved]
  - Memory impairment [Not Recovered/Not Resolved]
  - Blood sodium decreased [Unknown]
  - Aggression [Recovered/Resolved]
  - Vomiting [Not Recovered/Not Resolved]
  - Nausea [Unknown]
  - Malaise [Recovering/Resolving]
  - Shock symptom [Recovered/Resolved]
  - Nervousness [Recovered/Resolved]
  - Asthenia [Recovering/Resolving]
  - Product quality issue [Unknown]
  - Agitation [Unknown]
  - Somnolence [Recovering/Resolving]
  - Depression [Recovered/Resolved]
  - Homicidal ideation [Not Recovered/Not Resolved]
  - Drug ineffective [Unknown]
  - Feeling abnormal [Not Recovered/Not Resolved]
  - Depression [Recovering/Resolving]
  - Unevaluable event [Unknown]
  - Anxiety [Unknown]

NARRATIVE: CASE EVENT DATE: 2016
